FAERS Safety Report 25941217 (Version 1)
Quarter: 2025Q4

REPORT INFORMATION
  Report Type: Spontaneous
  Country: US (occurrence: US)
  Receive Date: 20251020
  Receipt Date: 20251020
  Transmission Date: 20260118
  Serious: Yes (Other)
  Sender: COOPERSURGICAL
  Company Number: US-COOPERSURGICAL, INC.-2025CPS004372

PATIENT
  Age: 27 Year
  Sex: Female
  Weight: 108.84 kg

DRUGS (1)
  1. PARAGARD T 380A [Suspect]
     Active Substance: COPPER
     Indication: Contraception
     Dosage: UNK
     Route: 015
     Dates: start: 20100927

REACTIONS (15)
  - Hydrosalpinx [Recovered/Resolved]
  - Salpingectomy [Recovered/Resolved]
  - Device breakage [Not Recovered/Not Resolved]
  - Foreign body in reproductive tract [Not Recovered/Not Resolved]
  - Complication of device removal [Not Recovered/Not Resolved]
  - Embedded device [Not Recovered/Not Resolved]
  - Emotional distress [Unknown]
  - Papilloma viral infection [Unknown]
  - Sensation of foreign body [Unknown]
  - Complication associated with device [Unknown]
  - Pelvic pain [Recovered/Resolved]
  - Vaginal infection [Unknown]
  - Device use issue [Not Recovered/Not Resolved]
  - Off label use [Unknown]
  - Device expulsion [Not Recovered/Not Resolved]

NARRATIVE: CASE EVENT DATE: 20101001
